FAERS Safety Report 12271995 (Version 1)
Quarter: 2016Q2

REPORT INFORMATION
  Report Type: Spontaneous
  Country: US (occurrence: US)
  Receive Date: 20160415
  Receipt Date: 20160415
  Transmission Date: 20160815
  Serious: No
  Sender: FDA-Public Use
  Company Number: US-FERRINGPH-2015FE01930

PATIENT
  Age: 77 Year
  Sex: Male
  Weight: 90.7 kg

DRUGS (4)
  1. ASPRIN [Concomitant]
     Active Substance: ASPIRIN
  2. ENALAPRIL [Concomitant]
     Active Substance: ENALAPRIL
  3. FINASTERIDE. [Concomitant]
     Active Substance: FINASTERIDE
  4. FIRMAGON [Suspect]
     Active Substance: DEGARELIX ACETATE
     Indication: PROSTATE CANCER
     Dosage: 240 MG, ONCE/SINGLE LOADING DOSE
     Route: 058
     Dates: start: 20150528, end: 20150528

REACTIONS (4)
  - Product reconstitution issue [Not Recovered/Not Resolved]
  - Testicular pain [Recovering/Resolving]
  - Testicular swelling [Recovering/Resolving]
  - Injection site discomfort [Recovering/Resolving]

NARRATIVE: CASE EVENT DATE: 20150528
